FAERS Safety Report 6050516-X (Version None)
Quarter: 2009Q1

REPORT INFORMATION
  Report Type: 
  Country: None (occurrence: None)
  Receive Date: 20090126
  Receipt Date: 20090119
  Transmission Date: 20090719
  Serious: Yes (Hospitalization)
  Sender: FDA-Public Use
  Company Number: PHHY2008CA31477

PATIENT
  Sex: Female

DRUGS (4)
  1. DIOVAN HCT [Suspect]
     Indication: HYPERTENSION
     Dosage: 80 MG VALSARTAN/12.5 MG HYDROCHLOROTHIAZIDE
     Route: 048
     Dates: start: 20070101, end: 20080613
  2. DIOVAN HCT [Suspect]
     Dosage: 160 MG VALSARTAN/12.5 MG HYDROCHLOROTHIAZIDE
     Route: 048
     Dates: start: 20080701, end: 20080901
  3. DIOVAN [Suspect]
     Indication: HYPERTENSION
     Dosage: 80 MG, QD
     Route: 048
     Dates: start: 20080601, end: 20080701
  4. DIOVAN [Suspect]
     Dosage: 160 MG, QD
     Route: 048
     Dates: start: 20080901

REACTIONS (3)
  - LIVER DISORDER [None]
  - LIVER SCAN ABNORMAL [None]
  - PANCREATITIS CHRONIC [None]
